FAERS Safety Report 7678607-8 (Version None)
Quarter: 2011Q3

REPORT INFORMATION
  Report Type: 
  Country: None (occurrence: None)
  Receive Date: 20110811
  Receipt Date: 20110810
  Transmission Date: 20111222
  Serious: Yes (Hospitalization, Other)
  Sender: FDA-Public Use
  Company Number: US-ABBOTT-10P-163-0661615-00

PATIENT
  Sex: Female
  Weight: 67.192 kg

DRUGS (37)
  1. VENTOLIN HFA [Concomitant]
     Indication: ASTHMA
     Route: 055
     Dates: start: 20100602, end: 20100616
  2. VENTOLIN HFA [Concomitant]
     Indication: UPPER RESPIRATORY TRACT INFECTION
     Route: 055
     Dates: start: 20100617, end: 20101013
  3. PROPOFOL [Concomitant]
     Indication: ANAESTHESIA
     Route: 042
     Dates: start: 20100702, end: 20100702
  4. PROPOFOL [Concomitant]
     Indication: FISTULA REPAIR
  5. ADVAIR DISKUS 100/50 [Concomitant]
     Indication: ASTHMA
     Route: 048
     Dates: start: 20100310, end: 20100403
  6. ANTIBIOTICS [Concomitant]
     Indication: UPPER RESPIRATORY TRACT INFECTION
     Route: 048
     Dates: start: 20100602, end: 20100611
  7. TYLENOL-500 [Concomitant]
     Dosage: 7 PILLS, 1 DAY
     Route: 048
     Dates: start: 20101011, end: 20101012
  8. OTHER CHEMICALS / EXPOSURE [Concomitant]
     Indication: EXPOSURE TO COMMUNICABLE DISEASE
     Dates: start: 20100415, end: 20100424
  9. OTHER CHEMICALS / EXPOSURE [Concomitant]
     Indication: PRODUCT USED FOR UNKNOWN INDICATION
     Dates: start: 20100626, end: 20100626
  10. LIDODERM [Concomitant]
     Indication: PAIN
     Dosage: PATCH:  FACE, SCALP 2.5 HOURS
     Route: 061
     Dates: start: 20101201, end: 20101201
  11. SINGULAIR [Concomitant]
     Indication: ASTHMA
     Dosage: 2.5 PER WEEK
     Route: 048
     Dates: start: 20100706, end: 20100802
  12. TYLENOL-500 [Concomitant]
     Indication: BACK PAIN
     Route: 048
     Dates: start: 20100421
  13. FERROUS SULFATE TAB [Concomitant]
     Indication: PRODUCT USED FOR UNKNOWN INDICATION
     Route: 048
     Dates: start: 20100310, end: 20101207
  14. ALBUTEROL SULFATE AUTOHALER [Concomitant]
     Indication: ASTHMA
     Route: 055
     Dates: start: 20100310, end: 20100403
  15. TYLENOL (CAPLET) [Concomitant]
     Indication: INFLAMMATION
     Route: 048
     Dates: start: 20100310, end: 20100403
  16. TYLENOL (CAPLET) [Concomitant]
     Indication: ARTHRALGIA
  17. TYLENOL-500 [Concomitant]
     Indication: MIGRAINE
     Dosage: 7 PILLS, 1 DAY
     Route: 048
     Dates: start: 20101004, end: 20101005
  18. ACETAMINOPHEN [Concomitant]
     Indication: HEADACHE
     Dosage: 2 TOTAL
     Route: 048
     Dates: start: 20100403, end: 20100410
  19. ZANTAC [Concomitant]
     Indication: GASTROOESOPHAGEAL REFLUX DISEASE
     Route: 048
     Dates: start: 20100802, end: 20101207
  20. OTHER CHEMICALS / EXPOSURE [Concomitant]
     Dosage: 24  HOURS, 1 DAY
     Route: 055
     Dates: start: 20100923, end: 20100924
  21. OTHER CHEMICALS / EXPOSURE [Concomitant]
     Route: 055
     Dates: start: 20100923, end: 20101207
  22. HUMIRA [Suspect]
     Indication: CROHN'S DISEASE
     Route: 058
     Dates: start: 20100310, end: 20101012
  23. AMBIEN [Concomitant]
     Indication: INSOMNIA
     Dosage: 5 TOTAL
     Route: 048
     Dates: start: 20100313, end: 20100403
  24. ALBUTEROL SULFATE AUTOHALER [Concomitant]
     Dates: start: 20100702, end: 20100702
  25. ADVAIR DISKUS 100/50 [Concomitant]
     Route: 055
     Dates: start: 20101026, end: 20101207
  26. VENTOLIN HFA [Concomitant]
     Route: 055
     Dates: start: 20101014, end: 20101026
  27. OTHER CHEMICALS / EXPOSURE [Concomitant]
     Indication: FISTULA REPAIR
     Dates: start: 20100702, end: 20100702
  28. FLONASE [Concomitant]
     Indication: PRODUCT USED FOR UNKNOWN INDICATION
     Route: 045
     Dates: start: 20101104, end: 20101207
  29. ADVAIR DISKUS 100/50 [Concomitant]
     Route: 055
     Dates: start: 20101014, end: 20101025
  30. ZANTAC [Concomitant]
     Indication: DYSPEPSIA
     Route: 048
     Dates: start: 20100706, end: 20100725
  31. PRENATAL [Concomitant]
     Indication: PRODUCT USED FOR UNKNOWN INDICATION
     Route: 048
     Dates: start: 20100310, end: 20101207
  32. FISH OIL [Concomitant]
     Indication: SUPPLEMENTATION THERAPY
     Route: 048
     Dates: start: 20100401, end: 20101207
  33. RHINOCORT [Concomitant]
     Indication: UPPER RESPIRATORY TRACT INFECTION
     Dates: start: 20100602, end: 20101103
  34. ZYRTEC [Concomitant]
     Indication: HYPERSENSITIVITY
     Route: 048
     Dates: start: 20100602, end: 20101207
  35. SINGULAIR [Concomitant]
     Indication: UPPER RESPIRATORY TRACT INFECTION
     Route: 048
     Dates: start: 20100802, end: 20101207
  36. TYLENOL-500 [Concomitant]
     Dosage: 2 PILLS, 1 DAY
     Route: 048
     Dates: start: 20101016, end: 20101016
  37. TYLENOL-500 [Concomitant]
     Dosage: 2 PILLS, 1 WEEK
     Route: 048
     Dates: start: 20101018, end: 20101207

REACTIONS (6)
  - HAEMORRHAGE [None]
  - RESPIRATORY TRACT INFECTION [None]
  - ABDOMINAL DISCOMFORT [None]
  - VOMITING [None]
  - FISTULA [None]
  - GASTROENTERITIS VIRAL [None]
